FAERS Safety Report 25495291 (Version 3)
Quarter: 2025Q3

REPORT INFORMATION
  Report Type: Report from Study
  Country: JP (occurrence: JP)
  Receive Date: 20250630
  Receipt Date: 20250806
  Transmission Date: 20251021
  Serious: Yes (Hospitalization)
  Sender: EISAI
  Company Number: JP-Eisai-202503888_LEQ_P_1

PATIENT
  Age: 76 Year
  Sex: Male

DRUGS (4)
  1. LEQEMBI [Suspect]
     Active Substance: LECANEMAB-IRMB
     Indication: Product used for unknown indication
     Dates: start: 20240624, end: 20250611
  2. LEQEMBI [Suspect]
     Active Substance: LECANEMAB-IRMB
  3. ROSUVASTATIN [Concomitant]
     Active Substance: ROSUVASTATIN
  4. VONOPRAZAN FUMARATE [Concomitant]
     Active Substance: VONOPRAZAN FUMARATE

REACTIONS (1)
  - Cerebral infarction [Recovered/Resolved]

NARRATIVE: CASE EVENT DATE: 20250620
